FAERS Safety Report 7257676-3 (Version None)
Quarter: 2011Q1

REPORT INFORMATION
  Report Type: 
  Country: None (occurrence: None)
  Receive Date: 20110129
  Receipt Date: 20100513
  Transmission Date: 20110831
  Serious: No
  Sender: FDA-Public Use
  Company Number: US-ABBOTT-10P-163-0644129-00

PATIENT
  Sex: Female
  Weight: 62.652 kg

DRUGS (3)
  1. NAPROSYN [Concomitant]
     Indication: RHEUMATOID ARTHRITIS
  2. HUMIRA [Suspect]
     Indication: RHEUMATOID ARTHRITIS
     Dates: start: 20090101
  3. YAZ [Concomitant]
     Indication: CONTRACEPTION

REACTIONS (1)
  - PAIN [None]
